FAERS Safety Report 16080225 (Version 2)
Quarter: 2019Q2

REPORT INFORMATION
  Report Type: Spontaneous
  Country: US (occurrence: US)
  Receive Date: 20190315
  Receipt Date: 20190425
  Transmission Date: 20190711
  Serious: No
  Sender: FDA-Public Use
  Company Number: US-BAUSCH-BL-2019-006578

PATIENT
  Age: 33 Year
  Sex: Female

DRUGS (1)
  1. TRETINOIN CREAM 0.025% [Suspect]
     Active Substance: TRETINOIN
     Indication: THERAPEUTIC SKIN CARE TOPICAL
     Dosage: SIZE OF PEA ONCE AT NIGHT
     Route: 065
     Dates: start: 201810

REACTIONS (1)
  - Chemical burn [Recovered/Resolved]

NARRATIVE: CASE EVENT DATE: 201902
